FAERS Safety Report 23600615 (Version 1)
Quarter: 2024Q1

REPORT INFORMATION
  Report Type: Spontaneous
  Country: CN (occurrence: CN)
  Receive Date: 20240306
  Receipt Date: 20240306
  Transmission Date: 20240409
  Serious: Yes (Hospitalization)
  Sender: FDA-Public Use
  Company Number: CN-002147023-NVSC2024CN045916

PATIENT
  Age: 59 Year
  Sex: Male

DRUGS (1)
  1. SACUBITRIL\VALSARTAN [Suspect]
     Active Substance: SACUBITRIL\VALSARTAN
     Indication: Hypertension
     Dosage: 0.1 G, BID
     Route: 048
     Dates: start: 20240225, end: 20240227

REACTIONS (5)
  - Hyperkalaemia [Recovering/Resolving]
  - Tachypnoea [Recovering/Resolving]
  - Oedema [Recovering/Resolving]
  - Blood chloride decreased [Recovering/Resolving]
  - Blood sodium decreased [Recovering/Resolving]

NARRATIVE: CASE EVENT DATE: 20240227
